FAERS Safety Report 8830345 (Version 3)
Quarter: 2014Q2

REPORT INFORMATION
  Report Type: Spontaneous
  Country: US (occurrence: US)
  Receive Date: 20121009
  Receipt Date: 20131024
  Transmission Date: 20141212
  Serious: No
  Sender: FDA-Public Use
  Company Number: US-PFIZER INC-2012246240

PATIENT
  Age: 49 Year
  Sex: Female
  Weight: 49.89 kg

DRUGS (2)
  1. PREMPRO [Suspect]
     Indication: MENOPAUSAL SYMPTOMS
     Dosage: 0.3 MG, DAILY (0.3 / 1.5)
     Dates: start: 2011
  2. PREMPRO [Suspect]
     Indication: NIGHT SWEATS

REACTIONS (1)
  - Drug ineffective [Unknown]
